FAERS Safety Report 6291277-9 (Version None)
Quarter: 2009Q3

REPORT INFORMATION
  Report Type: 
  Country: None (occurrence: None)
  Receive Date: 20090730
  Receipt Date: 20090723
  Transmission Date: 20100115
  Serious: Yes (Hospitalization)
  Sender: FDA-Public Use
  Company Number: CA-ABBOTT-09P-028-0587401-00

PATIENT
  Sex: Male

DRUGS (19)
  1. KALETRA [Suspect]
     Indication: HIV INFECTION
     Dosage: 200/50
     Route: 048
  2. ACETAMINOPHEN [Concomitant]
     Indication: DRUG USE FOR UNKNOWN INDICATION
  3. CALCIUM [Concomitant]
     Indication: DRUG USE FOR UNKNOWN INDICATION
  4. CHOLESTYRAMINE [Concomitant]
     Indication: DRUG USE FOR UNKNOWN INDICATION
  5. METRONIDAZOLE [Concomitant]
     Indication: DRUG USE FOR UNKNOWN INDICATION
  6. NYSTATIN [Concomitant]
     Indication: DRUG USE FOR UNKNOWN INDICATION
  7. CODEINE SUL TAB [Concomitant]
     Indication: DRUG USE FOR UNKNOWN INDICATION
  8. LOMOTIL [Concomitant]
     Indication: DRUG USE FOR UNKNOWN INDICATION
  9. EPOETIN [Concomitant]
     Indication: DRUG USE FOR UNKNOWN INDICATION
  10. LOPERAMIDE HYDROCHLORIDE [Concomitant]
     Indication: DRUG USE FOR UNKNOWN INDICATION
  11. METOPROLOL TARTRATE [Concomitant]
     Indication: DRUG USE FOR UNKNOWN INDICATION
  12. FENTANYL [Concomitant]
     Indication: DRUG USE FOR UNKNOWN INDICATION
     Route: 062
  13. SERTRALINE [Concomitant]
     Indication: DRUG USE FOR UNKNOWN INDICATION
  14. PANCREATIC ENZYMES [Concomitant]
     Indication: DRUG USE FOR UNKNOWN INDICATION
  15. CALCITRIOL [Concomitant]
     Indication: DRUG USE FOR UNKNOWN INDICATION
     Route: 042
  16. VITAMIN B COMPLEX CAP [Concomitant]
     Indication: DRUG USE FOR UNKNOWN INDICATION
  17. TENOFOVIR [Concomitant]
     Indication: DRUG USE FOR UNKNOWN INDICATION
  18. QUININE [Concomitant]
     Indication: DRUG USE FOR UNKNOWN INDICATION
  19. HYDROMORPHONE HCL [Concomitant]
     Indication: DRUG USE FOR UNKNOWN INDICATION

REACTIONS (2)
  - DIARRHOEA [None]
  - FAILURE TO THRIVE [None]
